FAERS Safety Report 5595620-5 (Version None)
Quarter: 2008Q1

REPORT INFORMATION
  Report Type: 
  Country: None (occurrence: None)
  Receive Date: 20080116
  Receipt Date: 20080116
  Transmission Date: 20080703
  Serious: Yes (Hospitalization)
  Sender: FDA-Public Use
  Company Number: None

PATIENT

DRUGS (1)
  1. ALLOPURINOL [Suspect]

REACTIONS (7)
  - ANAEMIA [None]
  - DERMATITIS EXFOLIATIVE [None]
  - NAUSEA [None]
  - NEUTROPENIA [None]
  - STEVENS-JOHNSON SYNDROME [None]
  - VOMITING [None]
  - WHITE BLOOD CELL COUNT DECREASED [None]
